FAERS Safety Report 11835583 (Version 2)
Quarter: 2016Q1

REPORT INFORMATION
  Report Type: Spontaneous
  Country: US (occurrence: US)
  Receive Date: 20151215
  Receipt Date: 20160120
  Transmission Date: 20160525
  Serious: Yes (Death, Hospitalization, Other)
  Sender: FDA-Public Use
  Company Number: US-BAYER-2015-482912

PATIENT
  Age: 82 Year
  Sex: Male

DRUGS (1)
  1. CIPRO [Suspect]
     Active Substance: CIPROFLOXACIN HYDROCHLORIDE
     Dosage: UNK

REACTIONS (7)
  - Rectal haemorrhage [Recovered/Resolved]
  - Prostate cancer [None]
  - Death [Fatal]
  - Internal haemorrhage [None]
  - Rash [None]
  - Rash macular [None]
  - Weight decreased [None]
